FAERS Safety Report 24572224 (Version 1)
Quarter: 2024Q4

REPORT INFORMATION
  Report Type: Spontaneous
  Country: US (occurrence: None)
  Receive Date: 20241030
  Receipt Date: 20241030
  Transmission Date: 20250115
  Serious: Yes (Life-Threatening, Hospitalization)
  Sender: Public
  Company Number: None

PATIENT
  Age: 28 Year
  Sex: Male
  Weight: 77.11 kg

DRUGS (3)
  1. NOVOLOG [Suspect]
     Active Substance: INSULIN ASPART
  2. omnipod 5 [Concomitant]
  3. dexcom G6 [Concomitant]

REACTIONS (3)
  - Drug delivery system malfunction [None]
  - Accidental overdose [None]
  - Incorrect dose administered by device [None]

NARRATIVE: CASE EVENT DATE: 20241012
